APPROVED DRUG PRODUCT: NIKKI
Active Ingredient: DROSPIRENONE; ETHINYL ESTRADIOL
Strength: 3MG;0.02MG
Dosage Form/Route: TABLET;ORAL
Application: A201661 | Product #001 | TE Code: AB
Applicant: LUPIN LTD
Approved: May 27, 2014 | RLD: No | RS: No | Type: RX